FAERS Safety Report 25014704 (Version 1)
Quarter: 2025Q1

REPORT INFORMATION
  Report Type: Spontaneous
  Country: BE (occurrence: BE)
  Receive Date: 20250226
  Receipt Date: 20250226
  Transmission Date: 20250409
  Serious: Yes (Death, Other)
  Sender: AMGEN
  Company Number: BE-AMGEN-BELSP2025037315

PATIENT

DRUGS (1)
  1. ADALIMUMAB [Suspect]
     Active Substance: ADALIMUMAB
     Indication: Colitis ulcerative
     Route: 065

REACTIONS (8)
  - Colorectal cancer [Fatal]
  - Gallbladder cancer [Fatal]
  - Cholangiocarcinoma [Fatal]
  - Death [Fatal]
  - B-cell lymphoma [Unknown]
  - Dysplasia [Unknown]
  - Neuroendocrine tumour [Unknown]
  - Therapy non-responder [Unknown]
